FAERS Safety Report 20861348 (Version 1)
Quarter: 2022Q2

REPORT INFORMATION
  Report Type: Spontaneous
  Country: NL (occurrence: NL)
  Receive Date: 20220523
  Receipt Date: 20220523
  Transmission Date: 20220720
  Serious: Yes (Hospitalization, Other)
  Sender: FDA-Public Use
  Company Number: None

PATIENT
  Age: 37 Year
  Sex: Male
  Weight: 75 kg

DRUGS (8)
  1. OXALIPLATIN [Suspect]
     Active Substance: OXALIPLATIN
     Indication: Colon cancer metastatic
     Dosage: UNK, QOW (5-FU CONTINUOUSLY VIA PICC LINE, FOLINIC ACID AND OXALIPLATIN COURSE EVERY TWO WEEKS)
     Route: 065
     Dates: start: 20220510, end: 20220510
  2. FLUOROURACIL [Suspect]
     Active Substance: FLUOROURACIL
     Indication: Colon cancer metastatic
     Dosage: UNK UNK, QOW
     Route: 065
     Dates: start: 20220510, end: 20220510
  3. LEUCOVORIN CALCIUM [Suspect]
     Active Substance: LEUCOVORIN CALCIUM
     Indication: Colon cancer metastatic
     Dosage: UNK, QOW (5-FU CONTINUOUSLY VIA PICC LINE, FOLINIC ACID AND OXALIPLATIN COURSE EVERY TWO WEEKS)
     Route: 065
     Dates: start: 20220510, end: 20220510
  4. DILTIAZEM [Concomitant]
     Active Substance: DILTIAZEM
     Dosage: MODIFIED-RELEASE TABLET, 120 MG (MILLIGRAMS)
  5. HERBALS\PLANTAGO OVATA LEAF [Concomitant]
     Active Substance: HERBALS\PLANTAGO OVATA LEAF
     Dosage: SACHET (GRANULATE), 3.25 G (GRAM)
  6. BISACODYL [Concomitant]
     Active Substance: BISACODYL
     Dosage: GASTRO-RESISTANT TABLET, 5 MG (MILLIGRAMS)
  7. ISOSORBIDEMONONITRAAT [Concomitant]
     Dosage: MODIFIED-RELEASE CAPSULE, 25 MG (MILLIGRAMS)
  8. ISOSORBIDEMONONITRAAT [Concomitant]
     Dosage: MODIFIED-RELEASE CAPSULE, 50 MG (MILLIGRAMS)

REACTIONS (1)
  - Arteriospasm coronary [Recovered/Resolved]

NARRATIVE: CASE EVENT DATE: 20220510
